FAERS Safety Report 6420038-2 (Version None)
Quarter: 2009Q4

REPORT INFORMATION
  Report Type: 
  Country: None (occurrence: None)
  Receive Date: 20091029
  Receipt Date: 20090720
  Transmission Date: 20100525
  Serious: No
  Sender: FDA-Public Use
  Company Number: A0797644A

PATIENT
  Age: 37 Year
  Sex: Male
  Weight: 118.2 kg

DRUGS (2)
  1. SUMATRIPTAN SUCCINATE [Suspect]
     Indication: MIGRAINE
     Dosage: 1SPR PER DAY
     Route: 045
     Dates: start: 20090601, end: 20090719
  2. CYMBALTA [Concomitant]

REACTIONS (6)
  - DRUG INEFFECTIVE [None]
  - EPISTAXIS [None]
  - EYE IRRITATION [None]
  - NASAL DISCOMFORT [None]
  - NASAL DISORDER [None]
  - PAIN [None]
